FAERS Safety Report 7956954-X (Version None)
Quarter: 2011Q4

REPORT INFORMATION
  Report Type: 
  Country: None (occurrence: None)
  Receive Date: 20111205
  Receipt Date: 20111130
  Transmission Date: 20120403
  Serious: Yes (Hospitalization)
  Sender: FDA-Public Use
  Company Number: US-ROCHE-1011922

PATIENT
  Sex: Female
  Weight: 76 kg

DRUGS (2)
  1. XOLAIR [Suspect]
     Indication: PRODUCT USED FOR UNKNOWN INDICATION
     Dates: start: 20111024
  2. XOLAIR [Suspect]
     Dates: start: 20111110

REACTIONS (1)
  - STAPHYLOCOCCAL INFECTION [None]
